FAERS Safety Report 14617011 (Version 1)
Quarter: 2018Q1

REPORT INFORMATION
  Report Type: Spontaneous
  Country: US (occurrence: US)
  Receive Date: 20180309
  Receipt Date: 20180309
  Transmission Date: 20180509
  Serious: Yes (Other)
  Sender: FDA-Public Use
  Company Number: US-PURDUE PHARMA-USA-2018-0142980

PATIENT
  Sex: Female

DRUGS (1)
  1. COLACE 2 IN 1 [Suspect]
     Active Substance: DOCUSATE SODIUM\SENNOSIDES
     Indication: PRODUCT USED FOR UNKNOWN INDICATION
     Dosage: 4 TABLET, NOCTE
     Route: 048
     Dates: start: 201801

REACTIONS (4)
  - Drug ineffective [Unknown]
  - Intestinal obstruction [Unknown]
  - Haematochezia [Unknown]
  - Dysphagia [Unknown]
